FAERS Safety Report 16234599 (Version 1)
Quarter: 2019Q2

REPORT INFORMATION
  Report Type: Report from Study
  Country: ES (occurrence: ES)
  Receive Date: 20190424
  Receipt Date: 20190424
  Transmission Date: 20190711
  Serious: Yes (Life-Threatening, Hospitalization)
  Sender: FDA-Public Use
  Company Number: ES-TEVA-2019-ES-1041524

PATIENT
  Age: 76 Year
  Sex: Male

DRUGS (6)
  1. IBUPROFENO (1769A) [Suspect]
     Active Substance: IBUPROFEN
     Route: 048
     Dates: start: 20181231, end: 20190103
  2. EZETROL 10 MG COMPRIMIDOS , 28 COMPRIMIDOS [Concomitant]
     Indication: CARDIOMYOPATHY ACUTE
     Dosage: 10 MILLIGRAM DAILY;
     Route: 048
     Dates: start: 201704
  3. OMEPRAZOL (2141A) [Concomitant]
     Active Substance: OMEPRAZOLE
     Indication: PROPHYLAXIS
     Dosage: 20 MILLIGRAM DAILY;
     Route: 048
     Dates: start: 201705
  4. FUROSEMIDA (1615A) [Concomitant]
     Active Substance: FUROSEMIDE
     Indication: CARDIAC FAILURE CONGESTIVE
     Dosage: 20 MILLIGRAM DAILY;
     Route: 048
     Dates: start: 201704
  5. ADIRO 100 MG COMPRIMIDOS GASTRORRESISTENTES EFG, 30 COMPRIMIDOS (POLIP [Interacting]
     Active Substance: ASPIRIN
     Indication: CARDIOMYOPATHY ACUTE
     Dosage: 100 MILLIGRAM DAILY;
     Route: 048
     Dates: start: 201704
  6. BISOPROLOL (2328A) [Concomitant]
     Active Substance: BISOPROLOL
     Indication: CARDIOMYOPATHY ACUTE
     Dosage: 2.5 MILLIGRAM DAILY;
     Route: 048
     Dates: start: 201704

REACTIONS (2)
  - Drug interaction [Unknown]
  - Upper gastrointestinal haemorrhage [Recovered/Resolved]

NARRATIVE: CASE EVENT DATE: 20190103
